FAERS Safety Report 9328773 (Version 1)
Quarter: 2013Q2

REPORT INFORMATION
  Report Type: Spontaneous
  Country: US (occurrence: None)
  Receive Date: 20130531
  Receipt Date: 20130531
  Transmission Date: 20140414
  Serious: Yes (Hospitalization)
  Sender: FDA-Public Use
  Company Number: 2013-205

PATIENT
  Age: 48 Year
  Sex: Male

DRUGS (20)
  1. FAZACLO (CLOZAPINE, USP) ODT (ORAL DISINTEGRATING TABLET) [Suspect]
     Route: 048
     Dates: start: 20070304
  2. GABAPENTIN (GABAPENTIN) [Concomitant]
  3. HYDROCODONE (HYDROCODONE BITARTRATE) [Concomitant]
  4. VOLTAREN (DICLOFENAC SODIUM) [Concomitant]
  5. COLACE [Concomitant]
  6. BISACODYL (BISACODYL) [Concomitant]
  7. VENLAFAXINE (VENLAFAXINE HYDROCHLORIDE) [Concomitant]
  8. SPIRIVA (TIOTROPIUM BROMIDE) [Concomitant]
  9. NOVOLIN (INSULIN HUMAN, INSULIN HUMAN INJECTION, ISOPHANE) [Concomitant]
  10. TYLENOL (PARACETAMOL) [Concomitant]
  11. LIDODERM (LIDOCAINE) [Concomitant]
  12. PROPRANOLOL (PROPRANOLOL HYDROCHLORIDE) [Concomitant]
  13. ISENTRESS (RALTEGRAVIR POTASSIUM) [Concomitant]
  14. CAPSAICIN (CAPSAICIN) [Concomitant]
  15. PROAIR HFA (SALBUTAMOL SULFATE) [Concomitant]
  16. TEGRETOL (CARBAMAZEPINE) [Concomitant]
  17. THERA SULFATE (FERROUS SULFATE) [Concomitant]
  18. LAMIVUDINE [Concomitant]
  19. ABACAVIR (ABACAVIR) [Concomitant]
  20. X-VIATE (UREA) [Concomitant]

REACTIONS (2)
  - Fall [None]
  - Fracture [None]
